FAERS Safety Report 10197027 (Version 1)
Quarter: 2014Q2

REPORT INFORMATION
  Report Type: Spontaneous
  Country: GB (occurrence: GB)
  Receive Date: 20140527
  Receipt Date: 20140527
  Transmission Date: 20141212
  Serious: Yes (Other)
  Sender: FDA-Public Use
  Company Number: GB-WATSON-2014-10716

PATIENT
  Age: 26 Year
  Sex: Female
  Weight: 53 kg

DRUGS (3)
  1. METRONIDAZOLE (UNKNOWN) [Suspect]
     Indication: PELVIC INFLAMMATORY DISEASE
     Dosage: 400 MG, UNKNOWN
     Route: 048
     Dates: start: 20140428
  2. OFLOXACINE (UNKNOWN) [Suspect]
     Indication: PELVIC INFLAMMATORY DISEASE
     Dosage: 400 MG, UNKNOWN
     Route: 048
     Dates: start: 20140428
  3. SERTRALINE [Concomitant]
     Indication: PRODUCT USED FOR UNKNOWN INDICATION
     Dosage: UNK
     Route: 065

REACTIONS (2)
  - Insomnia [Not Recovered/Not Resolved]
  - Abdominal pain upper [Not Recovered/Not Resolved]
